FAERS Safety Report 6689831-5 (Version None)
Quarter: 2010Q2

REPORT INFORMATION
  Report Type: 
  Country: None (occurrence: None)
  Receive Date: 20100412
  Receipt Date: 20100210
  Transmission Date: 20101027
  Serious: No
  Sender: FDA-Public Use
  Company Number: 1000011761

PATIENT
  Age: 64 Year
  Sex: Female

DRUGS (3)
  1. BYSTOLIC [Suspect]
     Indication: HYPERTENSION
     Dosage: 20 MIG, (20 MG, 1 IN 1 D), ORAL
     Route: 048
     Dates: start: 20090301
  2. SYNTHROID [Concomitant]
  3. LIPITOR [Concomitant]

REACTIONS (3)
  - LICHEN PLANUS [None]
  - PRURITUS [None]
  - RASH [None]
